FAERS Safety Report 19620049 (Version 1)
Quarter: 2021Q3

REPORT INFORMATION
  Report Type: Spontaneous
  Country: US (occurrence: US)
  Receive Date: 20210727
  Receipt Date: 20210727
  Transmission Date: 20211014
  Serious: No
  Sender: FDA-Public Use
  Company Number: None

PATIENT
  Age: 46 Year
  Sex: Male
  Weight: 94.5 kg

DRUGS (2)
  1. GAMUNEX [Suspect]
     Active Substance: HUMAN IMMUNOGLOBULIN G
     Dosage: ?          OTHER FREQUENCY:2 DAYS EVERY 4 WEE;?
     Route: 042
     Dates: start: 20210727
  2. GAMUNEX [Concomitant]
     Active Substance: HUMAN IMMUNOGLOBULIN G
     Dates: start: 20210727, end: 20210727

REACTIONS (3)
  - Flushing [None]
  - Blood pressure increased [None]
  - Cough [None]

NARRATIVE: CASE EVENT DATE: 20210727
